FAERS Safety Report 15041373 (Version 1)
Quarter: 2018Q2

REPORT INFORMATION
  Report Type: Spontaneous
  Country: JP (occurrence: JP)
  Receive Date: 20180621
  Receipt Date: 20180621
  Transmission Date: 20180711
  Serious: Yes (Other)
  Sender: FDA-Public Use
  Company Number: JP-VISTAPHARM, INC.-VER201806-000701

PATIENT
  Age: 66 Year
  Sex: Male

DRUGS (3)
  1. HYDROCODONE AND ACETAMINOPHEN [Suspect]
     Active Substance: ACETAMINOPHEN\HYDROCODONE
     Indication: MIGRAINE
     Dosage: UNKNOWN
  2. ETHANAMINE [Suspect]
     Active Substance: ETHYLAMINE
     Indication: MIGRAINE
     Dosage: UNKNOWN
  3. CAFFEINE. [Suspect]
     Active Substance: CAFFEINE

REACTIONS (3)
  - Atrial fibrillation [Recovered/Resolved]
  - Drug dependence [Unknown]
  - Palpitations [Recovered/Resolved]
